FAERS Safety Report 9866899 (Version 1)
Quarter: 2014Q1

REPORT INFORMATION
  Report Type: Spontaneous
  Country: US (occurrence: None)
  Receive Date: 20140131
  Receipt Date: 20140131
  Transmission Date: 20141002
  Serious: Yes (Hospitalization)
  Sender: FDA-Public Use
  Company Number: SYM-2014-15963

PATIENT
  Sex: 0

DRUGS (10)
  1. MESTINON [Suspect]
     Indication: MYASTHENIA GRAVIS
     Dosage: UNKNOWN -ONGOING
  2. OXYCONTIN [Concomitant]
  3. ATIVAN [Concomitant]
  4. CRESTOR [Concomitant]
  5. FLEXERIL [Concomitant]
  6. JANUMET [Concomitant]
  7. LAMICTAL [Concomitant]
  8. HYDROXYCHLOROQUINE [Concomitant]
  9. SINGULAIR [Concomitant]
  10. AMBIEN [Concomitant]

REACTIONS (3)
  - Obstruction [None]
  - Myasthenia gravis [None]
  - Medication residue present [None]
